FAERS Safety Report 6815446-1 (Version None)
Quarter: 2010Q2

REPORT INFORMATION
  Report Type: 
  Country: None (occurrence: None)
  Receive Date: 20100629
  Receipt Date: 20100617
  Transmission Date: 20101027
  Serious: Yes (Hospitalization)
  Sender: FDA-Public Use
  Company Number: 2010SP034209

PATIENT
  Age: 60 Year
  Sex: Female

DRUGS (9)
  1. DEXAMETHASONE [Suspect]
     Indication: METASTATIC NEOPLASM
     Dosage: 8 MG; BID; PO
     Route: 048
     Dates: start: 20100521
  2. IBUPROFEN [Suspect]
     Indication: BONE PAIN
     Dosage: 200 MG; TID;
  3. FERROUS FUMARATE [Concomitant]
  4. LEVOTHYROXINE SODIUM [Concomitant]
  5. MOVICOL /01053601/ [Concomitant]
  6. MS CONTIN [Concomitant]
  7. OMEPRAZOLE [Concomitant]
  8. ORAMORPH SR [Concomitant]
  9. ACETAMINOPHEN [Concomitant]

REACTIONS (3)
  - MELAENA [None]
  - NAUSEA [None]
  - VOMITING [None]
